FAERS Safety Report 21171495 (Version 2)
Quarter: 2022Q3

REPORT INFORMATION
  Report Type: Spontaneous
  Country: US (occurrence: US)
  Receive Date: 20220804
  Receipt Date: 20220928
  Transmission Date: 20221027
  Serious: Yes (Other)
  Sender: FDA-Public Use
  Company Number: US-PFIZER INC-PV202200036635

PATIENT
  Age: 76 Year
  Sex: Female

DRUGS (1)
  1. IBRANCE [Suspect]
     Active Substance: PALBOCICLIB
     Indication: Metastases to the mediastinum
     Dosage: 125 MG

REACTIONS (7)
  - Drug dependence [Unknown]
  - Feeling abnormal [Unknown]
  - Pharyngeal disorder [Unknown]
  - Upper-airway cough syndrome [Unknown]
  - Hypersensitivity [Unknown]
  - Alopecia [Unknown]
  - Off label use [Unknown]

NARRATIVE: CASE EVENT DATE: 20220101
